FAERS Safety Report 9319513 (Version 5)
Quarter: 2014Q2

REPORT INFORMATION
  Report Type: Spontaneous
  Country: US (occurrence: US)
  Receive Date: 20130530
  Receipt Date: 20140611
  Transmission Date: 20141212
  Serious: Yes (Hospitalization)
  Sender: FDA-Public Use
  Company Number: US-GLAXOSMITHKLINE-A0993704A

PATIENT
  Age: 33 Year
  Sex: Female

DRUGS (4)
  1. FLOLAN [Suspect]
     Indication: PULMONARY ARTERIAL HYPERTENSION
     Dosage: 36NGKM CONTINUOUS
     Route: 042
     Dates: start: 20071106
  2. OPSUMIT [Suspect]
     Indication: PRODUCT USED FOR UNKNOWN INDICATION
     Route: 065
  3. COUMADIN [Concomitant]
  4. ADCIRCA [Concomitant]

REACTIONS (15)
  - Malaise [Unknown]
  - Influenza [Recovered/Resolved]
  - Vomiting [Not Recovered/Not Resolved]
  - Diarrhoea [Not Recovered/Not Resolved]
  - Therapy cessation [Unknown]
  - Catheter site related reaction [Unknown]
  - Catheter site discolouration [Unknown]
  - Increased tendency to bruise [Unknown]
  - Cough [Unknown]
  - Epistaxis [Unknown]
  - Fluid retention [Unknown]
  - Dyspnoea [Unknown]
  - Investigation [Unknown]
  - Biopsy lymph gland [Unknown]
  - Catheter placement [Unknown]
